FAERS Safety Report 17828932 (Version 2)
Quarter: 2020Q2

REPORT INFORMATION
  Report Type: Spontaneous
  Country: US (occurrence: US)
  Receive Date: 20200527
  Receipt Date: 20200616
  Transmission Date: 20200714
  Serious: Yes (Hospitalization, Other)
  Sender: FDA-Public Use
  Company Number: US-VERTEX PHARMACEUTICALS-2020-011414

PATIENT
  Age: 67 Year
  Sex: Female

DRUGS (1)
  1. TRIKAFTA [Suspect]
     Active Substance: ELEXACAFTOR\IVACAFTOR\TEZACAFTOR
     Indication: CYSTIC FIBROSIS
     Dosage: 2 TABS (100MG ELEXACAFTOR/50MG TEZACAFTOR/75MG IVACAFTOR) AM AND 1 TAB (150MG IVACAFTOR) PM
     Route: 048
     Dates: start: 20200512

REACTIONS (9)
  - Fatigue [Recovering/Resolving]
  - Thinking abnormal [Recovering/Resolving]
  - Paraesthesia [Recovering/Resolving]
  - Atrial flutter [Recovering/Resolving]
  - Bronchiectasis [Recovering/Resolving]
  - Blood calcium increased [Unknown]
  - Blood potassium decreased [Unknown]
  - Mycobacterium avium complex infection [Recovering/Resolving]
  - Nausea [Recovering/Resolving]

NARRATIVE: CASE EVENT DATE: 2020
